FAERS Safety Report 18802225 (Version 2)
Quarter: 2022Q2

REPORT INFORMATION
  Report Type: Spontaneous
  Country: US (occurrence: US)
  Receive Date: 20210128
  Receipt Date: 20220421
  Transmission Date: 20220721
  Serious: No
  Sender: FDA-Public Use
  Company Number: US-PFIZER INC-2021064306

PATIENT
  Age: 64 Year
  Sex: Female

DRUGS (4)
  1. IBRANCE [Suspect]
     Active Substance: PALBOCICLIB
     Dosage: 125 MG, CYCLIC (1 QD (ONCE A DAY) FOR 21 DAYS, THEN 7 DAYS OFF)
     Dates: start: 20200214
  2. IBRANCE [Suspect]
     Active Substance: PALBOCICLIB
     Dosage: 125 MG, CYCLIC [QD (EVERY DAY) X 21 DAYS]
     Route: 048
     Dates: start: 20200220
  3. IBRANCE [Suspect]
     Active Substance: PALBOCICLIB
     Dosage: 100 MG
  4. IBRANCE [Suspect]
     Active Substance: PALBOCICLIB
     Dosage: 125 MG, CYCLIC [QD (EVERY DAY) X 21 DAYS]
     Route: 048
     Dates: start: 20200225

REACTIONS (2)
  - Alopecia [Unknown]
  - Fatigue [Unknown]
